FAERS Safety Report 9029777 (Version 1)
Quarter: 2013Q1

REPORT INFORMATION
  Report Type: Spontaneous
  Country: GB (occurrence: GB)
  Receive Date: 20130124
  Receipt Date: 20130124
  Transmission Date: 20140127
  Serious: Yes (Death)
  Sender: FDA-Public Use
  Company Number: GB-MYLANLABS-2013S1000938

PATIENT
  Age: 48 Year
  Sex: Male

DRUGS (6)
  1. FLUOXETINE [Suspect]
     Indication: ANXIETY
     Route: 048
  2. FLUOXETINE [Suspect]
     Indication: DEPRESSION
     Route: 048
  3. ZAPONEX [Suspect]
     Indication: PRODUCT USED FOR UNKNOWN INDICATION
     Route: 048
     Dates: start: 20081124, end: 20120924
  4. PREGABALIN [Concomitant]
     Indication: ANXIETY
     Route: 048
     Dates: start: 201007
  5. SULPIRIDE [Concomitant]
     Indication: PSYCHOTIC DISORDER
     Route: 048
     Dates: start: 2005
  6. VENTOLIN [Concomitant]
     Indication: ASTHMA
     Dates: start: 200911

REACTIONS (3)
  - Cardiac failure [Fatal]
  - Myocardial infarction [Fatal]
  - Ventricular hypertrophy [Fatal]
